FAERS Safety Report 13039942 (Version 5)
Quarter: 2017Q1

REPORT INFORMATION
  Report Type: Report from Study
  Country: US (occurrence: US)
  Receive Date: 20161219
  Receipt Date: 20170310
  Transmission Date: 20170428
  Serious: Yes (Hospitalization)
  Sender: FDA-Public Use
  Company Number: US-ROCHE-1861744

PATIENT
  Age: 46 Year
  Sex: Male
  Weight: 83.99 kg

DRUGS (19)
  1. ZELBORAF [Suspect]
     Active Substance: VEMURAFENIB
     Indication: MALIGNANT MELANOMA
     Route: 048
     Dates: start: 20161114, end: 20161128
  2. ZELBORAF [Suspect]
     Active Substance: VEMURAFENIB
     Route: 048
  3. ZELBORAF [Suspect]
     Active Substance: VEMURAFENIB
     Route: 048
  4. IMODIUM [Concomitant]
     Active Substance: LOPERAMIDE HYDROCHLORIDE
  5. ZELBORAF [Suspect]
     Active Substance: VEMURAFENIB
     Indication: METASTASES TO CENTRAL NERVOUS SYSTEM
     Route: 048
     Dates: start: 20161114, end: 20161127
  6. COTELLIC [Suspect]
     Active Substance: COBIMETINIB
     Indication: MALIGNANT MELANOMA
     Route: 048
     Dates: start: 20161114, end: 20161128
  7. COTELLIC [Suspect]
     Active Substance: COBIMETINIB
     Indication: METASTASES TO CENTRAL NERVOUS SYSTEM
     Route: 048
     Dates: start: 20161114, end: 20161127
  8. OMEPRAZOLE. [Concomitant]
     Active Substance: OMEPRAZOLE
     Indication: NAUSEA
     Route: 065
  9. MIRALAX [Concomitant]
     Active Substance: POLYETHYLENE GLYCOL 3350
  10. XANAX [Concomitant]
     Active Substance: ALPRAZOLAM
     Indication: INSOMNIA
     Route: 065
  11. PROCHLORPERAZINE. [Concomitant]
     Active Substance: PROCHLORPERAZINE
     Indication: NAUSEA
  12. COTELLIC [Suspect]
     Active Substance: COBIMETINIB
     Route: 048
  13. COTELLIC [Suspect]
     Active Substance: COBIMETINIB
     Route: 048
  14. ZELBORAF [Suspect]
     Active Substance: VEMURAFENIB
     Indication: LUNG NEOPLASM
     Route: 048
     Dates: start: 20161108
  15. ZELBORAF [Suspect]
     Active Substance: VEMURAFENIB
     Route: 048
  16. KEPPRA [Concomitant]
     Active Substance: LEVETIRACETAM
     Route: 065
     Dates: start: 201609, end: 20161115
  17. COTELLIC [Suspect]
     Active Substance: COBIMETINIB
     Route: 048
  18. COTELLIC [Suspect]
     Active Substance: COBIMETINIB
     Indication: LUNG NEOPLASM MALIGNANT
     Route: 048
     Dates: start: 20161108
  19. DEXAMETHASONE. [Concomitant]
     Active Substance: DEXAMETHASONE
     Route: 065
     Dates: start: 20160930, end: 20161119

REACTIONS (38)
  - Rash [Unknown]
  - Ulcer [Unknown]
  - Decreased appetite [Not Recovered/Not Resolved]
  - Social (pragmatic) communication disorder [Not Recovered/Not Resolved]
  - Weight increased [Unknown]
  - Insomnia [Unknown]
  - Pyrexia [Recovered/Resolved]
  - Rash maculo-papular [Recovered/Resolved]
  - Dehydration [Unknown]
  - Memory impairment [Not Recovered/Not Resolved]
  - Abdominal pain [Unknown]
  - Infection [Unknown]
  - Pruritus [Not Recovered/Not Resolved]
  - Dry skin [Not Recovered/Not Resolved]
  - Skin fissures [Not Recovered/Not Resolved]
  - Fatigue [Unknown]
  - Oropharyngeal pain [Unknown]
  - Brain oedema [Unknown]
  - Feeding disorder [Unknown]
  - Oral candidiasis [Not Recovered/Not Resolved]
  - Alopecia [Unknown]
  - Swelling [Unknown]
  - Tremor [Not Recovered/Not Resolved]
  - Electrolyte imbalance [Unknown]
  - Off label use [Unknown]
  - Nausea [Recovered/Resolved]
  - Asthenia [Not Recovered/Not Resolved]
  - Disorientation [Not Recovered/Not Resolved]
  - Drug dependence [Unknown]
  - Constipation [Unknown]
  - Pharyngeal erythema [Unknown]
  - Pain [Unknown]
  - Dehydration [Recovered/Resolved]
  - Blood sodium decreased [Unknown]
  - Pyrexia [Unknown]
  - Decreased appetite [Unknown]
  - Vomiting [Unknown]
  - Abdominal discomfort [Unknown]

NARRATIVE: CASE EVENT DATE: 20161126
